FAERS Safety Report 6213162-0 (Version None)
Quarter: 2009Q2

REPORT INFORMATION
  Report Type: 
  Country: None (occurrence: None)
  Receive Date: 20090528
  Receipt Date: 20090326
  Transmission Date: 20091009
  Serious: No
  Sender: FDA-Public Use
  Company Number: MC200900124

PATIENT
  Age: 74 Year
  Sex: Male

DRUGS (5)
  1. CLEVIPREX [Suspect]
     Indication: CEREBRAL HAEMORRHAGE
     Dosage: 1-2 MG/HR, INTRAVENOUS; TITRATED TO 32 MG, HR, INTRAVENOUS
     Route: 042
     Dates: end: 20090325
  2. CLEVIPREX [Suspect]
     Indication: HYPERTENSION
     Dosage: 1-2 MG/HR, INTRAVENOUS; TITRATED TO 32 MG, HR, INTRAVENOUS
     Route: 042
     Dates: end: 20090325
  3. CLEVIPREX [Suspect]
     Indication: CEREBRAL HAEMORRHAGE
     Dosage: 1-2 MG/HR, INTRAVENOUS; TITRATED TO 32 MG, HR, INTRAVENOUS
     Route: 042
     Dates: start: 20090324
  4. CLEVIPREX [Suspect]
     Indication: HYPERTENSION
     Dosage: 1-2 MG/HR, INTRAVENOUS; TITRATED TO 32 MG, HR, INTRAVENOUS
     Route: 042
     Dates: start: 20090324
  5. NICARDIPINE HCL [Concomitant]

REACTIONS (1)
  - DRUG INEFFECTIVE [None]
